FAERS Safety Report 7106014-5 (Version None)
Quarter: 2010Q4

REPORT INFORMATION
  Report Type: 
  Country: None (occurrence: None)
  Receive Date: 20101116
  Receipt Date: 20101109
  Transmission Date: 20110411
  Serious: Yes (Other)
  Sender: FDA-Public Use
  Company Number: JP-PFIZER INC-2010144042

PATIENT

DRUGS (1)
  1. ZITHROMAX [Suspect]
     Dosage: 500 MG/DAY
     Route: 048

REACTIONS (1)
  - PURPURA [None]
